FAERS Safety Report 4787501-1 (Version None)
Quarter: 2005Q4

REPORT INFORMATION
  Report Type: 
  Country: None (occurrence: None)
  Receive Date: 20051003
  Receipt Date: 20050919
  Transmission Date: 20060501
  Serious: Yes (Hospitalization)
  Sender: FDA-Public Use
  Company Number: US016041

PATIENT
  Sex: Female

DRUGS (9)
  1. GABITRIL [Suspect]
     Indication: ANXIETY
     Dosage: 20 MG BID ORAL
     Route: 048
     Dates: start: 20030101, end: 20030728
  2. GABITRIL [Suspect]
     Indication: MOOD SWINGS
     Dosage: 20 MG BID ORAL
     Route: 048
     Dates: start: 20030101, end: 20030728
  3. EFFEXOR [Concomitant]
  4. ABILIFY [Concomitant]
  5. LOTRIMIN [Concomitant]
  6. PREMARIN [Concomitant]
  7. SYNTHROID [Concomitant]
  8. FOSAMAX [Concomitant]
  9. KLONOPIN [Concomitant]

REACTIONS (7)
  - AMNESIA [None]
  - CONDITION AGGRAVATED [None]
  - CONVULSION [None]
  - DEPRESSION [None]
  - DISSOCIATION [None]
  - IMPAIRED DRIVING ABILITY [None]
  - MENTAL STATUS CHANGES [None]
